FAERS Safety Report 8781547 (Version 2)
Quarter: 2013Q2

REPORT INFORMATION
  Report Type: Spontaneous
  Country: US (occurrence: US)
  Receive Date: 20120913
  Receipt Date: 20130405
  Transmission Date: 20140414
  Serious: Yes (Hospitalization, Other)
  Sender: FDA-Public Use
  Company Number: US-009507513-1209USA003166

PATIENT
  Age: 50 Year
  Sex: Male

DRUGS (7)
  1. ISENTRESS [Suspect]
     Route: 048
  2. REYATAZ [Interacting]
     Route: 048
  3. CELSENTRI [Suspect]
     Route: 048
  4. QUININE [Interacting]
     Dosage: 2 DF, QD
     Route: 041
  5. NORVIR [Interacting]
     Route: 048
  6. 3TC COMPLEX [Concomitant]
  7. LAMIVUDINE [Concomitant]
     Route: 048

REACTIONS (4)
  - Malaria [Unknown]
  - Myalgia [Unknown]
  - Overdose [Unknown]
  - Drug interaction [Unknown]
